FAERS Safety Report 10144854 (Version 1)
Quarter: 2014Q2

REPORT INFORMATION
  Report Type: Spontaneous
  Country: US (occurrence: US)
  Receive Date: 20140430
  Receipt Date: 20140430
  Transmission Date: 20141212
  Serious: No
  Sender: FDA-Public Use
  Company Number: US-SANOFI-AVENTIS-2013SA062588

PATIENT
  Age: 50 Year
  Sex: Female

DRUGS (20)
  1. DEMEROL [Suspect]
  2. ACYCLOVIR [Concomitant]
  3. ALBUTEROL [Concomitant]
  4. ASPIRIN [Concomitant]
  5. ZYRTEC [Concomitant]
  6. VOLTAREN [Concomitant]
  7. DRISDOL [Concomitant]
     Dosage: DOSE:50000 UNIT(S)
  8. FLONASE [Concomitant]
  9. FOLVITE [Concomitant]
  10. GLUCAGON [Concomitant]
  11. LANTUS [Concomitant]
     Dosage: DOSE:100 UNIT(S)
  12. HUMALOG [Concomitant]
     Dosage: DOSE:100 UNIT(S)
  13. LAMICTAL [Concomitant]
  14. LEVOTHYROXINE [Concomitant]
  15. LIDOCAINE [Concomitant]
  16. LISINOPRIL [Concomitant]
  17. LORAZEPAM [Concomitant]
  18. LOVASTATIN [Concomitant]
  19. METFORMIN [Concomitant]
  20. MULTIVITAMINS [Concomitant]

REACTIONS (2)
  - Drug hypersensitivity [Unknown]
  - Rash [Unknown]
